FAERS Safety Report 24361918 (Version 1)
Quarter: 2024Q3

REPORT INFORMATION
  Report Type: Report from Study
  Country: NL (occurrence: NL)
  Receive Date: 20240925
  Receipt Date: 20240925
  Transmission Date: 20241016
  Serious: Yes (Hospitalization, Other)
  Sender: RANBAXY
  Company Number: NL-SUN PHARMACEUTICAL INDUSTRIES LTD-2024R1-469485

PATIENT
  Age: 59 Year
  Sex: Male

DRUGS (1)
  1. SOTALOL [Suspect]
     Active Substance: SOTALOL\SOTALOL HYDROCHLORIDE
     Indication: Atrial fibrillation
     Dosage: 40 MILLIGRAM, DAILY
     Route: 065

REACTIONS (2)
  - Atrioventricular septal defect [Unknown]
  - Sinus node dysfunction [Unknown]
